FAERS Safety Report 25705571 (Version 1)
Quarter: 2025Q3

REPORT INFORMATION
  Report Type: Spontaneous
  Country: US (occurrence: US)
  Receive Date: 20250820
  Receipt Date: 20250820
  Transmission Date: 20251020
  Serious: No
  Sender: GLENMARK
  Company Number: US-GLENMARK PHARMACEUTICALS-2024GMK094866

PATIENT

DRUGS (7)
  1. MELOXICAM [Suspect]
     Active Substance: MELOXICAM
     Indication: Fascial rupture
     Route: 065
  2. VALTREX [Suspect]
     Active Substance: VALACYCLOVIR HYDROCHLORIDE
     Indication: Fascial rupture
     Route: 065
  3. TYLENOL [Suspect]
     Active Substance: ACETAMINOPHEN
     Indication: Fascial rupture
     Route: 065
  4. OCALIVA [Concomitant]
     Active Substance: OBETICHOLIC ACID
     Indication: Primary biliary cholangitis
     Dosage: 5 MILLIGRAM DAILY
     Route: 048
     Dates: start: 20240219, end: 20240326
  5. OCALIVA [Concomitant]
     Active Substance: OBETICHOLIC ACID
     Dosage: 5 MILLIGRAM, OD
     Route: 048
     Dates: start: 20240328, end: 2024
  6. OCALIVA [Concomitant]
     Active Substance: OBETICHOLIC ACID
     Dosage: 5 MILLIGRAM, BID, TWO TABLETS DAILY
     Route: 048
  7. STELARA [Concomitant]
     Active Substance: USTEKINUMAB
     Indication: Product used for unknown indication
     Route: 065

REACTIONS (1)
  - Laboratory test abnormal [Not Recovered/Not Resolved]
